FAERS Safety Report 4405252-X (Version None)
Quarter: 2004Q3

REPORT INFORMATION
  Report Type: 
  Country: None (occurrence: None)
  Receive Date: 20040723
  Receipt Date: 20040629
  Transmission Date: 20050211
  Serious: Yes (Hospitalization)
  Sender: FDA-Public Use
  Company Number: US-BRISTOL-MYERS SQUIBB COMPANY-12626974

PATIENT
  Age: 72 Year
  Sex: Female
  Weight: 100 kg

DRUGS (11)
  1. ABILIFY [Suspect]
     Indication: DEPRESSION
     Route: 048
     Dates: start: 20040524
  2. MORPHINE [Interacting]
  3. LOTENSIN [Concomitant]
  4. COLACE [Concomitant]
  5. PROZAC [Concomitant]
  6. LASIX [Concomitant]
  7. SYNTHROID [Concomitant]
  8. HYZAAR [Concomitant]
  9. MILK OF MAGNESIA TAB [Concomitant]
  10. COUMADIN [Concomitant]
  11. TYLENOL [Concomitant]

REACTIONS (9)
  - ASPARTATE AMINOTRANSFERASE INCREASED [None]
  - BLOOD GLUCOSE INCREASED [None]
  - DEEP VEIN THROMBOSIS [None]
  - DEPRESSION [None]
  - DRUG INTERACTION [None]
  - HYPERTENSION [None]
  - MENTAL STATUS CHANGES [None]
  - NEUROLEPTIC MALIGNANT SYNDROME [None]
  - TREMOR [None]
